FAERS Safety Report 26055608 (Version 1)
Quarter: 2025Q4

REPORT INFORMATION
  Report Type: Report from Study
  Country: US (occurrence: US)
  Receive Date: 20251117
  Receipt Date: 20251117
  Transmission Date: 20260118
  Serious: Yes (Other)
  Sender: JOHNSON AND JOHNSON
  Company Number: US-JNJFOC-20251155634

PATIENT
  Age: 4 Decade
  Sex: Male

DRUGS (2)
  1. SPRAVATO [Suspect]
     Active Substance: ESKETAMINE
     Indication: Depression
     Dosage: ?84 MG,73 TOTAL DOSES?
     Route: 045
     Dates: start: 20241113, end: 20251112
  2. SPRAVATO [Suspect]
     Active Substance: ESKETAMINE
     Dosage: ?56 MG,1 TOTAL DOSES?
     Route: 045
     Dates: start: 20241106, end: 20241106

REACTIONS (4)
  - Suicidal ideation [Unknown]
  - Depression [Unknown]
  - Condition aggravated [Unknown]
  - Product dose omission issue [Unknown]
